FAERS Safety Report 10464209 (Version 1)
Quarter: 2014Q3

REPORT INFORMATION
  Report Type: Spontaneous
  Country: US (occurrence: None)
  Receive Date: 20140918
  Receipt Date: 20140918
  Transmission Date: 20150326
  Serious: No
  Sender: FDA-Public Use
  Company Number: None

PATIENT
  Age: 13 Year
  Sex: Female
  Weight: 83.01 kg

DRUGS (2)
  1. DIFFERIN [Suspect]
     Active Substance: ADAPALENE
     Indication: ACNE
     Route: 061
  2. GENERIC DIFFERIN [Concomitant]

REACTIONS (1)
  - Hypersensitivity [None]
